FAERS Safety Report 5814356-6 (Version None)
Quarter: 2008Q3

REPORT INFORMATION
  Report Type: 
  Country: None (occurrence: None)
  Receive Date: 20080717
  Receipt Date: 20080715
  Transmission Date: 20090109
  Serious: Yes (Other)
  Sender: FDA-Public Use
  Company Number: PT-SANOFI-SYNTHELABO-D01200805002

PATIENT
  Sex: Female
  Weight: 59 kg

DRUGS (6)
  1. FLUOROURACIL [Suspect]
     Dosage: 592MG IV BOLUS D1+D2 FOLLOWED BY 5-FU 3552MG OVER 46-HOUR CONTINUOUS INFUSION.
     Route: 042
     Dates: start: 20080523, end: 20080523
  2. OXALIPLATIN [Suspect]
     Route: 042
     Dates: start: 20080523, end: 20080523
  3. CIPRALEX [Concomitant]
  4. MIRTAZAPINE [Concomitant]
  5. LEUCOVORIN CALCIUM [Suspect]
     Route: 042
     Dates: start: 20080523, end: 20080523
  6. PLACEBO [Suspect]
     Indication: NEUROLOGICAL SYMPTOM
     Route: 048
     Dates: start: 20071101, end: 20080628

REACTIONS (1)
  - MYOCARDIAL INFARCTION [None]
